FAERS Safety Report 8255194-7 (Version None)
Quarter: 2012Q2

REPORT INFORMATION
  Report Type: 
  Country: None (occurrence: None)
  Receive Date: 20120403
  Receipt Date: 20120329
  Transmission Date: 20120825
  Serious: Yes (Death, Hospitalization)
  Sender: FDA-Public Use
  Company Number: IE-JNJFOC-20120314729

PATIENT
  Sex: Female
  Weight: 58 kg

DRUGS (8)
  1. SERTRALINE HYDROCHLORIDE [Suspect]
     Indication: DEPRESSION
     Route: 048
     Dates: start: 20120123, end: 20120129
  2. DIAZEPAM [Concomitant]
     Indication: PRODUCT USED FOR UNKNOWN INDICATION
     Route: 065
     Dates: start: 20111101
  3. ACETAMINOPHEN [Suspect]
     Route: 048
  4. RISPERDAL [Suspect]
     Route: 048
     Dates: start: 20110926
  5. RISPERDAL [Suspect]
     Indication: PRODUCT USED FOR UNKNOWN INDICATION
     Dosage: 0.25MG, ONE IN THE MORNING AND ONE AT NOON; 0.5 MG AT NIGHT (TOTAL 1 WEEK SUPPLY)
     Route: 048
     Dates: start: 20111101
  6. PROZAC [Suspect]
     Indication: PRODUCT USED FOR UNKNOWN INDICATION
     Route: 048
     Dates: start: 20110926
  7. PROZAC [Suspect]
     Route: 048
     Dates: start: 20111101
  8. ACETAMINOPHEN [Suspect]
     Indication: PRODUCT USED FOR UNKNOWN INDICATION
     Route: 048

REACTIONS (3)
  - SUICIDE ATTEMPT [None]
  - MULTIPLE DRUG OVERDOSE [None]
  - COMPLETED SUICIDE [None]
